FAERS Safety Report 22187535 (Version 9)
Quarter: 2023Q4

REPORT INFORMATION
  Report Type: Report from Study
  Country: GB (occurrence: GB)
  Receive Date: 20230407
  Receipt Date: 20231017
  Transmission Date: 20240110
  Serious: Yes (Life-Threatening, Hospitalization, Other)
  Sender: FDA-Public Use
  Company Number: GB-INCYTE CORPORATION-2023IN002405

PATIENT

DRUGS (2)
  1. RETIFANLIMAB [Suspect]
     Active Substance: RETIFANLIMAB
     Indication: Anal squamous cell carcinoma
     Dosage: 500 MILLIGRAM (ON DAY 1 OF EACH 28-DAY CYCLE)
     Route: 042
     Dates: start: 20221202, end: 20230310
  2. CARBOPLATIN [Suspect]
     Active Substance: CARBOPLATIN
     Indication: Anal squamous cell carcinoma
     Dosage: AUC 5 (ON DAY 1 OF EACH 28-DAY CYCLE)
     Route: 042
     Dates: start: 20221202

REACTIONS (4)
  - Immune-mediated enterocolitis [Recovered/Resolved]
  - Neutropenic sepsis [Recovered/Resolved]
  - Pulmonary embolism [Not Recovered/Not Resolved]
  - Immune-mediated enterocolitis [Recovered/Resolved]

NARRATIVE: CASE EVENT DATE: 20230304
